FAERS Safety Report 15290684 (Version 2)
Quarter: 2019Q2

REPORT INFORMATION
  Report Type: Report from Study
  Country: FR (occurrence: FR)
  Receive Date: 20180817
  Receipt Date: 20190628
  Transmission Date: 20190711
  Serious: Yes (Death)
  Sender: FDA-Public Use
  Company Number: FR-PFIZER INC-2010076770

PATIENT
  Age: 65 Year
  Sex: Male
  Weight: 85 kg

DRUGS (13)
  1. AXEPIM [Concomitant]
     Active Substance: CEFEPIME HYDROCHLORIDE
     Dosage: 3 G, DAILY
     Route: 042
     Dates: start: 20100528, end: 20100603
  2. VFEND [Concomitant]
     Active Substance: VORICONAZOLE
     Dosage: 600 MG, DAILY
     Route: 048
     Dates: start: 20100601, end: 20100608
  3. NEUPOGEN [Concomitant]
     Active Substance: FILGRASTIM
     Indication: BONE MARROW FAILURE
     Dosage: 48 UG, DAILY
     Route: 042
     Dates: start: 20100530, end: 20100605
  4. MYLOTARG [Suspect]
     Active Substance: GEMTUZUMAB OZOGAMICIN
     Indication: ACUTE MYELOID LEUKAEMIA
     Dosage: 5 MG X3 /CYCLE
     Route: 041
     Dates: start: 20100512, end: 20100518
  5. AXEPIM [Concomitant]
     Active Substance: CEFEPIME HYDROCHLORIDE
     Dosage: 1 G, DAILY
     Route: 042
     Dates: start: 20100604, end: 20100606
  6. VFEND [Concomitant]
     Active Substance: VORICONAZOLE
     Indication: ANTIFUNGAL TREATMENT
     Dosage: 800 MG, DAILY
     Route: 048
     Dates: start: 20100528, end: 20100531
  7. ZYVOXID [Concomitant]
     Active Substance: LINEZOLID
     Indication: ANTIBIOTIC THERAPY
     Dosage: 1200 MG, DAILY
     Route: 042
     Dates: start: 20100529, end: 20100603
  8. AXEPIM [Concomitant]
     Active Substance: CEFEPIME HYDROCHLORIDE
     Indication: ANTIBIOTIC PROPHYLAXIS
     Dosage: 6 G, DAILY
     Route: 042
     Dates: start: 20100515, end: 20100527
  9. INEXIUM [Concomitant]
     Active Substance: ESOMEPRAZOLE
     Indication: GASTROOESOPHAGEAL REFLUX DISEASE
     Dosage: 40 MG, DAILY
     Route: 048
     Dates: start: 20100605, end: 20100613
  10. ARACYTINE [Suspect]
     Active Substance: CYTARABINE
     Indication: ACUTE MYELOID LEUKAEMIA
     Dosage: 400 MG, DAILY
     Route: 041
     Dates: start: 20100512, end: 20100518
  11. LASILIX [Concomitant]
     Active Substance: FUROSEMIDE
     Indication: DIURETIC THERAPY
     Dosage: 1 G, DAILY
     Route: 042
     Dates: start: 20100602, end: 20100604
  12. DAUNORUBICIN [Suspect]
     Active Substance: DAUNORUBICIN
     Indication: ACUTE MYELOID LEUKAEMIA
     Dosage: 120 MG, DAILY
     Route: 041
     Dates: start: 20100512, end: 20100514
  13. VFEND [Concomitant]
     Active Substance: VORICONAZOLE
     Dosage: 400 MG, DAILY
     Route: 048
     Dates: start: 20100609, end: 20100614

REACTIONS (1)
  - Death [Fatal]

NARRATIVE: CASE EVENT DATE: 20100614
